FAERS Safety Report 6346620-9 (Version None)
Quarter: 2009Q3

REPORT INFORMATION
  Report Type: 
  Country: None (occurrence: None)
  Receive Date: 20090909
  Receipt Date: 20090904
  Transmission Date: 20100115
  Serious: Yes (Death)
  Sender: FDA-Public Use
  Company Number: US-GILEAD-2009-0024114

PATIENT
  Sex: Female
  Weight: 63.56 kg

DRUGS (11)
  1. LETAIRIS [Suspect]
     Indication: PULMONARY ARTERIAL HYPERTENSION
     Route: 048
     Dates: start: 20090305
  2. WARFARIN SODIUM [Concomitant]
  3. METOPROLOL [Concomitant]
  4. PRAVACHOL [Concomitant]
  5. PANTOPRAZOLE SODIUM [Concomitant]
  6. LASIX [Concomitant]
  7. OXYGEN [Concomitant]
  8. LEVOTHYROXINE [Concomitant]
  9. POTASSIUM CHLORIDE [Concomitant]
  10. FISH OIL [Concomitant]
  11. FERROUS SULFATE TAB [Concomitant]

REACTIONS (1)
  - DEATH [None]
